FAERS Safety Report 24668238 (Version 2)
Quarter: 2024Q4

REPORT INFORMATION
  Report Type: Spontaneous
  Country: JP (occurrence: JP)
  Receive Date: 20241127
  Receipt Date: 20241207
  Transmission Date: 20250115
  Serious: Yes (Death, Hospitalization)
  Sender: ABBVIE
  Company Number: JP-ABBVIE-6022708

PATIENT
  Age: 93 Year
  Sex: Male

DRUGS (1)
  1. SKYRIZI [Suspect]
     Active Substance: RISANKIZUMAB-RZAA
     Indication: Colitis ulcerative
     Dosage: FORM STRENGTH: 600 MILLIGRAM
     Route: 041

REACTIONS (4)
  - Renal failure [Fatal]
  - Myocardial infarction [Unknown]
  - Benign prostatic hyperplasia [Unknown]
  - Nephrogenic anaemia [Unknown]
